FAERS Safety Report 5643949-4 (Version None)
Quarter: 2008Q1

REPORT INFORMATION
  Report Type: 
  Country: None (occurrence: None)
  Receive Date: 20080226
  Receipt Date: 20080215
  Transmission Date: 20080703
  Serious: Yes (Death)
  Sender: FDA-Public Use
  Company Number: 2007US002553

PATIENT
  Age: 60 Year
  Sex: Male

DRUGS (1)
  1. PROTOPIC [Suspect]
     Indication: DERMATITIS
     Dosage: BID, TOPICAL
     Route: 061
     Dates: start: 20040401

REACTIONS (2)
  - NON-HODGKIN'S LYMPHOMA [None]
  - T-CELL LYMPHOMA [None]
